FAERS Safety Report 6794844-9 (Version None)
Quarter: 2010Q2

REPORT INFORMATION
  Report Type: 
  Country: None (occurrence: None)
  Receive Date: 20100625
  Receipt Date: 20100617
  Transmission Date: 20101027
  Serious: Yes (Other)
  Sender: FDA-Public Use
  Company Number: US-ASTRAZENECA-2009UW10474

PATIENT
  Age: 19199 Day
  Sex: Male

DRUGS (6)
  1. SEROQUEL [Suspect]
     Route: 048
     Dates: start: 20040626
  2. LEXAPRO [Concomitant]
     Dates: start: 20040823
  3. AMARYL [Concomitant]
     Dates: start: 20040908
  4. NEURONTIN [Concomitant]
     Dates: start: 20040930
  5. NEXIUM [Concomitant]
     Dates: start: 20041015
  6. ACETAMINOPHEN [Concomitant]
     Dates: start: 20041015

REACTIONS (2)
  - NEUROPATHY PERIPHERAL [None]
  - TYPE 2 DIABETES MELLITUS [None]
